FAERS Safety Report 19897744 (Version 1)
Quarter: 2021Q3

REPORT INFORMATION
  Report Type: Spontaneous
  Country: CA (occurrence: CA)
  Receive Date: 20210930
  Receipt Date: 20210930
  Transmission Date: 20211014
  Serious: Yes (Other)
  Sender: FDA-Public Use
  Company Number: CA-SA-2021SA318782

PATIENT
  Age: 60 Year
  Sex: Male

DRUGS (1)
  1. RANITIDINE. [Suspect]
     Active Substance: RANITIDINE
     Indication: PRODUCT USED FOR UNKNOWN INDICATION
     Dosage: 150 MG, QD
     Route: 048

REACTIONS (10)
  - Asthma [Unknown]
  - Eye pruritus [Recovered/Resolved]
  - Wheezing [Unknown]
  - Seasonal allergy [Unknown]
  - Eczema [Unknown]
  - Therapeutic product effect incomplete [Unknown]
  - Dermatitis allergic [Unknown]
  - Ocular discomfort [Unknown]
  - Glaucoma [Unknown]
  - Ocular hyperaemia [Unknown]
